FAERS Safety Report 6469071-5 (Version None)
Quarter: 2009Q4

REPORT INFORMATION
  Report Type: 
  Country: None (occurrence: None)
  Receive Date: 20091203
  Receipt Date: 20091124
  Transmission Date: 20100525
  Serious: Yes (Disabling)
  Sender: FDA-Public Use
  Company Number: US-ASTRAZENECA-2009SE28787

PATIENT
  Sex: Male

DRUGS (3)
  1. CRESTOR [Suspect]
     Route: 048
     Dates: end: 20090101
  2. AVODART [Concomitant]
  3. DETROL LA [Concomitant]

REACTIONS (4)
  - ARTHRALGIA [None]
  - DIARRHOEA [None]
  - MUSCULAR WEAKNESS [None]
  - POLLAKIURIA [None]
